FAERS Safety Report 19400078 (Version 1)
Quarter: 2021Q2

REPORT INFORMATION
  Report Type: Spontaneous
  Country: US (occurrence: US)
  Receive Date: 20210610
  Receipt Date: 20210610
  Transmission Date: 20210717
  Serious: No
  Sender: FDA-Public Use
  Company Number: US-MYLANLABS-2021M1031126

PATIENT
  Sex: Female

DRUGS (1)
  1. CORTIFOAM [Suspect]
     Active Substance: HYDROCORTISONE ACETATE
     Indication: PROCTITIS ULCERATIVE
     Dosage: 10 PERCENT
     Route: 054

REACTIONS (3)
  - Product packaging quantity issue [Not Recovered/Not Resolved]
  - Device issue [Not Recovered/Not Resolved]
  - Wrong technique in product usage process [Unknown]
